FAERS Safety Report 6009893-8 (Version None)
Quarter: 2008Q4

REPORT INFORMATION
  Report Type: 
  Country: None (occurrence: None)
  Receive Date: 20081218
  Receipt Date: 20081210
  Transmission Date: 20090506
  Serious: Yes (Hospitalization)
  Sender: FDA-Public Use
  Company Number: PL-RANBAXY-2008RR-19863

PATIENT
  Age: 75 Year
  Sex: Female

DRUGS (12)
  1. SPIRONOLACTONE [Suspect]
  2. QUINAPRIL [Suspect]
  3. METOPROLOL TARTRATE [Suspect]
  4. FUROSEMIDE [Suspect]
  5. METILDIGOXINE [Suspect]
  6. ISOSORBIDE [Suspect]
  7. ACENOCOUMAROL [Suspect]
  8. POTASSIUM CHLORIDE [Suspect]
  9. GLIMEPIRIDE [Suspect]
  10. METFORMIN HCL [Suspect]
  11. LEVOTHYROXINE SODIUM [Suspect]
     Dosage: UNK
  12. PREDNISOLONE [Suspect]

REACTIONS (1)
  - HYPERKALAEMIA [None]
